FAERS Safety Report 5467401-4 (Version None)
Quarter: 2007Q3

REPORT INFORMATION
  Report Type: 
  Country: None (occurrence: None)
  Receive Date: 20070925
  Receipt Date: 20070921
  Transmission Date: 20080115
  Serious: Yes (Hospitalization, Other)
  Sender: FDA-Public Use
  Company Number: DEWYE720306JUN05

PATIENT
  Sex: Male
  Weight: 65 kg

DRUGS (3)
  1. RAPAMUNE [Suspect]
     Indication: PROPHYLAXIS AGAINST TRANSPLANT REJECTION
     Dosage: 5 MG
     Route: 048
     Dates: start: 20050202, end: 20050311
  2. CORTICOSTEROID NOS [Concomitant]
  3. MYCOPHENOLATE MOFETIL [Concomitant]
     Dosage: 1000 MG

REACTIONS (1)
  - PNEUMONIA [None]
